FAERS Safety Report 8887612 (Version 1)
Quarter: 2012Q4

REPORT INFORMATION
  Report Type: Spontaneous
  Country: US (occurrence: None)
  Receive Date: 20121101
  Receipt Date: 20121101
  Transmission Date: 20130627
  Serious: Yes (Other)
  Sender: FDA-Public Use
  Company Number: None

PATIENT
  Age: 53 Year
  Sex: Male
  Weight: 77.11 kg

DRUGS (5)
  1. AMLODIPINE BESILATE [Suspect]
     Indication: PRINZMETAL ANGINA
     Route: 048
     Dates: start: 20120120, end: 20121020
  2. LISINOPRIL [Concomitant]
  3. ISOSORBIDE MONONITRATE [Concomitant]
  4. AMLODIPINE [Concomitant]
  5. MONONITRATE [Concomitant]

REACTIONS (2)
  - Hyperglycaemia [None]
  - Glycosylated haemoglobin increased [None]
